FAERS Safety Report 6419410-6 (Version None)
Quarter: 2009Q4

REPORT INFORMATION
  Report Type: 
  Country: None (occurrence: None)
  Receive Date: 20091027
  Receipt Date: 20091016
  Transmission Date: 20100525
  Serious: Yes (Hospitalization)
  Sender: FDA-Public Use
  Company Number: 340001J09FRA

PATIENT
  Age: 28 Year
  Sex: Female

DRUGS (4)
  1. OVITRELLE (CHORIOGONADOTROPIN ALFA) [Suspect]
     Indication: ASSISTED FERTILISATION
     Dosage: 250 MCG, ONCE ;
     Dates: start: 20070501, end: 20070501
  2. OVITRELLE (CHORIOGONADOTROPIN ALFA) [Suspect]
     Indication: ASSISTED FERTILISATION
     Dosage: 250 MCG, ONCE ;
     Dates: start: 20070801, end: 20070801
  3. PUREGON (FOLLITROPIN BETA) [Concomitant]
  4. ORGALUTRAN (GANIRELIX) [Concomitant]

REACTIONS (1)
  - BIPOLAR DISORDER [None]
